FAERS Safety Report 4414642-0 (Version None)
Quarter: 2004Q3

REPORT INFORMATION
  Report Type: 
  Country: None (occurrence: None)
  Receive Date: 20040729
  Receipt Date: 20040721
  Transmission Date: 20050211
  Serious: Yes (Hospitalization)
  Sender: FDA-Public Use
  Company Number: FR-JNJFOC-20040706519

PATIENT
  Age: 44 Year
  Sex: Male

DRUGS (8)
  1. RISPERDAL CONSTA [Suspect]
     Indication: PSYCHOTIC DISORDER
     Dosage: 50 MG, 1 IN 14 DAY, INTRA-MUSCULAR
     Route: 030
     Dates: start: 20040713
  2. RISPERDAL [Suspect]
     Indication: PSYCHOTIC DISORDER
     Dosage: 8 MG, IN 1 DAY, ORAL
     Route: 048
     Dates: start: 20040601
  3. TERCIAN (CYAMEMAZINE) [Concomitant]
  4. IMOVANE (ZOPICLONE) [Concomitant]
  5. ARTANE [Concomitant]
  6. THIAMINE (THIAMINE) [Concomitant]
  7. VITAMIN B1 TAB [Concomitant]
  8. VITAMIN B6 [Concomitant]

REACTIONS (5)
  - DYSSTASIA [None]
  - FATIGUE [None]
  - FEELING DRUNK [None]
  - HYPOTONIA [None]
  - MOBILITY DECREASED [None]
